FAERS Safety Report 12136418 (Version 1)
Quarter: 2016Q1

REPORT INFORMATION
  Report Type: Spontaneous
  Country: US (occurrence: None)
  Receive Date: 20160301
  Receipt Date: 20160301
  Transmission Date: 20160526
  Serious: Yes (Disabling)
  Sender: FDA-Public Use
  Company Number: None

PATIENT
  Age: 57 Year
  Sex: Female
  Weight: 100.7 kg

DRUGS (22)
  1. QUETIAPINE [Concomitant]
     Active Substance: QUETIAPINE
  2. FISH OIL [Concomitant]
     Active Substance: FISH OIL
  3. VITAMIN B COMPLEX [Concomitant]
     Active Substance: CYANOCOBALAMIN\DEXPANTHENOL\NIACINAMIDE\PYRIDOXINE HYDROCHLORIDE\RIBOFLAVIN 5^-PHOSPHATE SODIUM\THIAMINE HYDROCHLORIDE\VITAMIN B COMPLEX
  4. TRIAMTERENE/ HCTZ [Concomitant]
  5. TRAMADOL. [Concomitant]
     Active Substance: TRAMADOL
  6. CALCIUM [Concomitant]
     Active Substance: CALCIUM
  7. ATENOLOL. [Concomitant]
     Active Substance: ATENOLOL
  8. VITAMIN D3 [Concomitant]
     Active Substance: CHOLECALCIFEROL
  9. VICTOZA [Suspect]
     Active Substance: LIRAGLUTIDE
     Indication: DIABETES MELLITUS
     Dosage: 1.2MG 1 INJECTION OF 1.2 MG ONCE AT NIGHT BY INJECTION
     Dates: start: 20151230, end: 20160218
  10. SIMVASTATIN. [Concomitant]
     Active Substance: SIMVASTATIN
  11. IRON [Concomitant]
     Active Substance: IRON
  12. PRIMROSE OIL [Concomitant]
  13. JANUVIA [Concomitant]
     Active Substance: SITAGLIPTIN PHOSPHATE
  14. LISINOPRIL. [Concomitant]
     Active Substance: LISINOPRIL
  15. MULTIVITAMIN [Concomitant]
     Active Substance: VITAMINS
  16. VITAMIN C [Concomitant]
     Active Substance: ASCORBIC ACID
  17. ALPHA LIPOIC ACID FIBER GUMMIES [Concomitant]
  18. LYRICA [Concomitant]
     Active Substance: PREGABALIN
  19. METFORMIN [Concomitant]
     Active Substance: METFORMIN HYDROCHLORIDE
  20. BLACK COHOSH [Concomitant]
     Active Substance: BLACK COHOSH
  21. FLASHFIGHTERS [Concomitant]
  22. MACHINE TO CHECK SUGAR LEVELS [Concomitant]

REACTIONS (4)
  - Diarrhoea [None]
  - Nausea [None]
  - Abdominal pain upper [None]
  - Dizziness [None]

NARRATIVE: CASE EVENT DATE: 20160213
